FAERS Safety Report 15530341 (Version 2)
Quarter: 2018Q4

REPORT INFORMATION
  Report Type: Other
  Country: HU (occurrence: HU)
  Receive Date: 20181018
  Receipt Date: 20181026
  Transmission Date: 20190205
  Serious: Yes (Other)
  Sender: FDA-Public Use
  Company Number: HU-EMD SERONO-E2B_90062364

PATIENT
  Age: 7 Year
  Sex: Female

DRUGS (1)
  1. SOMATROPIN. [Suspect]
     Active Substance: SOMATROPIN
     Indication: PRODUCT USED FOR UNKNOWN INDICATION

REACTIONS (2)
  - Hyperphagia [Not Recovered/Not Resolved]
  - Diabetes insipidus [Unknown]
